FAERS Safety Report 8817354 (Version 1)
Quarter: 2012Q4

REPORT INFORMATION
  Report Type: 
  Country: DK (occurrence: GB)
  Receive Date: 20121004
  Receipt Date: 20121004
  Transmission Date: 20130627
  Serious: Yes (Other)
  Sender: FDA-Public Use
  Company Number: GB-FRI-1000039194

PATIENT
  Age: 27 Year
  Sex: Female
  Weight: 59.42 kg

DRUGS (1)
  1. CITALOPRAM [Suspect]
     Indication: PANIC DISORDER
     Dosage: 20 mg
     Route: 048
     Dates: start: 201201, end: 201204

REACTIONS (1)
  - Sleep paralysis [Not Recovered/Not Resolved]
